FAERS Safety Report 23551102 (Version 1)
Quarter: 2024Q1

REPORT INFORMATION
  Report Type: Report from Study
  Country: US (occurrence: US)
  Receive Date: 20240222
  Receipt Date: 20240222
  Transmission Date: 20240410
  Serious: Yes (Hospitalization, Other)
  Sender: FDA-Public Use
  Company Number: US-ABBVIE-5626558

PATIENT
  Sex: Female

DRUGS (1)
  1. VENCLEXTA [Suspect]
     Active Substance: VENETOCLAX
     Indication: Myelofibrosis
     Dosage: FORM STRENGTH: 100 MG
     Route: 048

REACTIONS (3)
  - Acute myeloid leukaemia [Unknown]
  - Off label use [Unknown]
  - Haematological malignancy [Unknown]
